FAERS Safety Report 5572833-X (Version None)
Quarter: 2007Q4

REPORT INFORMATION
  Report Type: 
  Country: None (occurrence: None)
  Receive Date: 20071223
  Receipt Date: 20071217
  Transmission Date: 20080405
  Serious: Yes (Other)
  Sender: FDA-Public Use
  Company Number: PHEH2007US15818

PATIENT
  Sex: Female

DRUGS (2)
  1. ZELNORM [Suspect]
     Dosage: 6 MG, BID
     Dates: start: 20020101
  2. ZELNORM [Suspect]
     Dosage: UNK, UNK
     Dates: start: 20071214, end: 20071217

REACTIONS (3)
  - CARDIAC OPERATION [None]
  - CORONARY ARTERY BYPASS [None]
  - RENAL DISORDER [None]
